FAERS Safety Report 4301986-6 (Version None)
Quarter: 2004Q1

REPORT INFORMATION
  Report Type: 
  Country: None (occurrence: None)
  Receive Date: 20040220
  Receipt Date: 20040209
  Transmission Date: 20041129
  Serious: Yes (Hospitalization)
  Sender: FDA-Public Use
  Company Number: US-JNJFOC-20031000215

PATIENT
  Age: 78 Year
  Sex: Female

DRUGS (7)
  1. OXYBUTYNIN HYDROCHLORIDE (OXYBUTYNIN HYDROCHLORIDE) UNSPECIFIED [Suspect]
     Indication: URINARY INCONTINENCE
     Dosage: ORAL
     Route: 048
     Dates: start: 20030301, end: 20030501
  2. DITROPAN XL [Suspect]
     Indication: HYPERTONIC BLADDER
     Dosage: 10 MG, 1 IN 1 DAY, ORAL
     Route: 048
     Dates: start: 20030201, end: 20030301
  3. ARICEPT [Concomitant]
  4. ZYPREXA [Concomitant]
  5. SEROQUELL (QUETIAPINE FUMARATE) [Concomitant]
  6. RISPERDAL [Concomitant]
  7. ROBINUL (GLYCOPYRRONIUM BROMIDE) [Concomitant]

REACTIONS (5)
  - CONFUSIONAL STATE [None]
  - DRUG INTERACTION [None]
  - DRY MOUTH [None]
  - HALLUCINATION [None]
  - URINARY TRACT INFECTION [None]
